FAERS Safety Report 6843739-0 (Version None)
Quarter: 2010Q3

REPORT INFORMATION
  Report Type: 
  Country: None (occurrence: None)
  Receive Date: 20100715
  Receipt Date: 20100706
  Transmission Date: 20110219
  Serious: Yes (Other)
  Sender: FDA-Public Use
  Company Number: CA-BRISTOL-MYERS SQUIBB COMPANY-15190788

PATIENT
  Age: 54 Year
  Sex: Male

DRUGS (11)
  1. EFAVIRENZ [Suspect]
     Route: 048
  2. ATAZANAVIR SULFATE [Interacting]
     Route: 065
  3. RALTEGRAVIR [Interacting]
     Dosage: RALTEGRAVIR POTASSIUM TABS
     Route: 048
  4. BUPROPION HCL [Interacting]
     Dosage: TABS
     Route: 065
  5. CLONAZEPAM [Interacting]
     Dosage: TABS
     Route: 065
  6. KALETRA [Interacting]
     Route: 065
  7. LAMIVUDINE [Interacting]
     Route: 065
  8. QUETIAPINE FUMARATE [Interacting]
     Dosage: TABS
     Route: 065
  9. SERTRALINE HCL [Interacting]
     Dosage: CAPS
     Route: 065
  10. VALPROIC ACID [Interacting]
     Route: 065
  11. ZOPICLONE [Interacting]
     Dosage: TABS
     Route: 065

REACTIONS (2)
  - DEPRESSION [None]
  - DRUG INTERACTION [None]
